FAERS Safety Report 9553233 (Version 1)
Quarter: 2013Q2

REPORT INFORMATION
  Report Type: Spontaneous
  Country: US (occurrence: None)
  Receive Date: 20130507
  Receipt Date: 20130507
  Transmission Date: 20140414
  Serious: Yes (Other)
  Sender: FDA-Public Use
  Company Number: 2135225-2013-00063

PATIENT
  Age: 30 Year
  Sex: Female

DRUGS (1)
  1. ASCLERA [Suspect]
     Indication: SCLEROTHERAPY
     Dates: start: 20121215

REACTIONS (2)
  - Rash erythematous [None]
  - Skin hypopigmentation [None]
